FAERS Safety Report 7208797-2 (Version None)
Quarter: 2010Q4

REPORT INFORMATION
  Report Type: 
  Country: None (occurrence: None)
  Receive Date: 20101222
  Receipt Date: 20101208
  Transmission Date: 20110411
  Serious: Yes (Other)
  Sender: FDA-Public Use
  Company Number: 1000016392

PATIENT
  Age: 40 Year
  Sex: Female
  Weight: 83 kg

DRUGS (8)
  1. ESCITALOPRAM [Suspect]
     Indication: MAJOR DEPRESSION
     Dosage: 2.5 MG (2.5 MG, 1 IN 1 D)
     Dates: start: 20100612
  2. ESCITALOPRAM [Suspect]
     Indication: MAJOR DEPRESSION
     Dosage: 10 MG (10 MG, 1 IN 1 D)
     Dates: end: 20100729
  3. LEVOTHYROXINE SODIUM [Concomitant]
  4. KARDEGIC (ACETYLSALICYLATE LYSINE) (ACETYLSALICYLATE LYSINE) [Concomitant]
  5. MICROVAL (LEVONORGESTREL) (LEVONORGESTREL) [Concomitant]
  6. MYOLASTAN (TETRAZEPAM) (TETRAZEPAM) [Concomitant]
  7. NEXIUM [Concomitant]
  8. IXPRIM (TRAMADOL, PARACETAMOL) (TRAMADOL, PARACETAMOL) [Concomitant]

REACTIONS (4)
  - AGITATION [None]
  - INSOMNIA [None]
  - LOGORRHOEA [None]
  - PARADOXICAL DRUG REACTION [None]
